FAERS Safety Report 10897211 (Version 1)
Quarter: 2015Q1

REPORT INFORMATION
  Report Type: Spontaneous
  Country: US (occurrence: None)
  Receive Date: 20150302
  Receipt Date: 20150302
  Transmission Date: 20150721
  Serious: No
  Sender: FDA-Public Use
  Company Number: None

PATIENT
  Age: 54 Year
  Sex: Female

DRUGS (7)
  1. VALTREX [Concomitant]
     Active Substance: VALACYCLOVIR HYDROCHLORIDE
  2. SYNTHROID [Suspect]
     Active Substance: LEVOTHYROXINE SODIUM
  3. HARVONI [Suspect]
     Active Substance: LEDIPASVIR\SOFOSBUVIR
     Indication: HEPATITIS C VIRUS TEST POSITIVE
     Dosage: 1 PILL QD
     Route: 048
     Dates: start: 20141217, end: 20150227
  4. HARVONI [Suspect]
     Active Substance: LEDIPASVIR\SOFOSBUVIR
     Dosage: 1 PILL QD
     Route: 048
     Dates: start: 20141217, end: 20150227
  5. KYLETRA [Concomitant]
  6. INVIRASE [Concomitant]
     Active Substance: SAQUINAVIR MESYLATE
  7. ISENTRESS [Concomitant]
     Active Substance: RALTEGRAVIR POTASSIUM

REACTIONS (3)
  - Dyspnoea [None]
  - Nervous system disorder [None]
  - Drug interaction [None]

NARRATIVE: CASE EVENT DATE: 20150222
